FAERS Safety Report 4793365-2 (Version None)
Quarter: 2005Q4

REPORT INFORMATION
  Report Type: 
  Country: None (occurrence: None)
  Receive Date: 20051005
  Receipt Date: 20050916
  Transmission Date: 20060501
  Serious: Yes (Hospitalization, Other)
  Sender: FDA-Public Use
  Company Number: USA0509108459

PATIENT
  Age: 71 Year
  Sex: Female

DRUGS (10)
  1. FORTEO [Suspect]
     Indication: OSTEOPOROSIS
     Dates: start: 20050907
  2. ALPHAGAN [Concomitant]
  3. PREDNISONE [Concomitant]
  4. MIACALCIN [Concomitant]
  5. MEGACE [Concomitant]
  6. ZANAFLEX [Concomitant]
  7. COMBIVENT [Concomitant]
  8. MULTI-VITAMIN [Concomitant]
  9. CALCIUM GLUCONATE [Concomitant]
  10. METHADONE [Concomitant]

REACTIONS (7)
  - ABDOMINAL DISTENSION [None]
  - BLOOD PRESSURE INCREASED [None]
  - CONDITION AGGRAVATED [None]
  - FLUSHING [None]
  - HEADACHE [None]
  - PAIN [None]
  - PHARMACEUTICAL PRODUCT COMPLAINT [None]
